FAERS Safety Report 11047102 (Version 1)
Quarter: 2015Q2

REPORT INFORMATION
  Report Type: Spontaneous
  Country: IT (occurrence: None)
  Receive Date: 20150416
  Receipt Date: 20150416
  Transmission Date: 20150821
  Serious: Yes (Other)
  Sender: FDA-Public Use
  Company Number: 2820894

PATIENT
  Age: 47 Year
  Sex: Female

DRUGS (5)
  1. ANTRA [Concomitant]
     Active Substance: OMEPRAZOLE
  2. MEROPENEM. [Suspect]
     Active Substance: MEROPENEM
     Indication: TUBERCULOSIS
     Dosage: NOT OTHERWISE SPECIFIED
     Route: 042
     Dates: start: 20150330, end: 20150401
  3. LEVOFLOXACIN. [Concomitant]
     Active Substance: LEVOFLOXACIN
  4. MYCOBUTIN [Concomitant]
     Active Substance: RIFABUTIN
  5. ZITHROMAX [Concomitant]
     Active Substance: AZITHROMYCIN DIHYDRATE

REACTIONS (2)
  - Off label use [None]
  - Vomiting [None]

NARRATIVE: CASE EVENT DATE: 20150331
